FAERS Safety Report 15401939 (Version 2)
Quarter: 2018Q4

REPORT INFORMATION
  Report Type: Spontaneous
  Country: ZA (occurrence: ZA)
  Receive Date: 20180919
  Receipt Date: 20181003
  Transmission Date: 20190204
  Serious: Yes (Death, Other)
  Sender: FDA-Public Use
  Company Number: ZA-BAYER-2018-140321

PATIENT
  Age: 64 Year
  Sex: Male

DRUGS (1)
  1. XOFIGO [Suspect]
     Active Substance: RADIUM RA-223 DICHLORIDE
     Dosage: UNK
     Dates: start: 20180705, end: 20180705

REACTIONS (4)
  - Blood count abnormal [None]
  - Disease progression [Fatal]
  - Metastases to lung [None]
  - Pancytopenia [None]

NARRATIVE: CASE EVENT DATE: 20180723
